FAERS Safety Report 25316353 (Version 1)
Quarter: 2025Q2

REPORT INFORMATION
  Report Type: Spontaneous
  Country: US (occurrence: US)
  Receive Date: 20250515
  Receipt Date: 20250515
  Transmission Date: 20250717
  Serious: No
  Sender: RANBAXY
  Company Number: US-SUN PHARMACEUTICAL INDUSTRIES LTD-2025R1-492889

PATIENT
  Age: 67 Year
  Sex: Female
  Weight: 81.633 kg

DRUGS (1)
  1. ILUMYA [Suspect]
     Active Substance: TILDRAKIZUMAB-ASMN
     Indication: Psoriatic arthropathy
     Route: 065

REACTIONS (2)
  - Off label use [Unknown]
  - Product dose omission issue [Unknown]
